FAERS Safety Report 7938324-3 (Version None)
Quarter: 2011Q4

REPORT INFORMATION
  Report Type: 
  Country: None (occurrence: None)
  Receive Date: 20111123
  Receipt Date: 20111122
  Transmission Date: 20120403
  Serious: Yes (Other)
  Sender: FDA-Public Use
  Company Number: US-ABBOTT-11P-163-0732352-00

PATIENT
  Sex: Female
  Weight: 58.112 kg

DRUGS (3)
  1. HUMIRA [Suspect]
     Indication: PSORIATIC ARTHROPATHY
     Dates: start: 20080101, end: 20110619
  2. METHOTREXATE [Concomitant]
     Indication: PSORIATIC ARTHROPATHY
  3. HUMIRA [Suspect]
     Dates: start: 20110901

REACTIONS (7)
  - OEDEMA PERIPHERAL [None]
  - BLADDER CANCER [None]
  - MICTURITION URGENCY [None]
  - HAEMORRHAGE URINARY TRACT [None]
  - BLOOD URINE PRESENT [None]
  - BLADDER DISCOMFORT [None]
  - SKIN EXFOLIATION [None]
